FAERS Safety Report 7701879-8 (Version None)
Quarter: 2011Q3

REPORT INFORMATION
  Report Type: 
  Country: None (occurrence: None)
  Receive Date: 20110822
  Receipt Date: 20110816
  Transmission Date: 20111222
  Serious: Yes (Death, Other)
  Sender: FDA-Public Use
  Company Number: US-PFIZER INC-2011159612

PATIENT
  Sex: Male
  Weight: 121.91 kg

DRUGS (9)
  1. ALDACTONE [Concomitant]
     Dosage: 25 MG, 1X/DAY
  2. LOVENOX [Concomitant]
     Dosage: 110 MG, 2X/DAY
  3. OXYGEN [Concomitant]
     Dosage: 2 L, UNK
  4. WARFARIN SODIUM [Concomitant]
     Indication: PULMONARY EMBOLISM
     Dosage: ALTERNATING 10 + 15MG
  5. LASIX [Concomitant]
     Dosage: 20 MG, 1X/DAY
  6. CARDIZEM CD [Concomitant]
     Dosage: 1 DF, 1X/DAY
  7. OXYCODONE HYDROCHLORIDE [Concomitant]
     Dosage: 5 MG, AS NEEDED
  8. REVATIO [Suspect]
     Dosage: 20 MG, 3X/DAY
     Dates: start: 20101122
  9. LACTULOSE [Concomitant]
     Dosage: 20 GM/30ML, 3X/DAY

REACTIONS (4)
  - ACUTE SINUSITIS [None]
  - PULMONARY HYPERTENSION [None]
  - COUGH [None]
  - SYNCOPE [None]
